FAERS Safety Report 10098017 (Version 23)
Quarter: 2016Q3

REPORT INFORMATION
  Report Type: Report from Study
  Country: CA (occurrence: CA)
  Receive Date: 20140423
  Receipt Date: 20160926
  Transmission Date: 20161108
  Serious: Yes (Hospitalization, Other)
  Sender: FDA-Public Use
  Company Number: CA-ROCHE-1298604

PATIENT
  Age: 74 Year
  Sex: Male
  Weight: 70 kg

DRUGS (18)
  1. ACTEMRA [Suspect]
     Active Substance: TOCILIZUMAB
     Route: 042
     Dates: start: 20131008
  2. ACTEMRA [Suspect]
     Active Substance: TOCILIZUMAB
     Route: 042
     Dates: start: 20150626
  3. SERTRALINE [Concomitant]
     Active Substance: SERTRALINE HYDROCHLORIDE
  4. ACTEMRA [Suspect]
     Active Substance: TOCILIZUMAB
     Route: 042
     Dates: start: 20140523
  5. FOLIC ACID. [Concomitant]
     Active Substance: FOLIC ACID
  6. ACTEMRA [Suspect]
     Active Substance: TOCILIZUMAB
     Route: 042
     Dates: start: 20111103
  7. ACTEMRA [Suspect]
     Active Substance: TOCILIZUMAB
     Route: 042
     Dates: start: 20120103
  8. ACTEMRA [Suspect]
     Active Substance: TOCILIZUMAB
     Route: 042
     Dates: start: 20160505
  9. ACTEMRA [Suspect]
     Active Substance: TOCILIZUMAB
     Route: 042
     Dates: start: 20110222
  10. ACTEMRA [Suspect]
     Active Substance: TOCILIZUMAB
     Route: 042
     Dates: start: 20110705
  11. ATORVASTATIN [Concomitant]
     Active Substance: ATORVASTATIN
  12. METHOTREXATE. [Concomitant]
     Active Substance: METHOTREXATE
  13. ACTEMRA [Suspect]
     Active Substance: TOCILIZUMAB
     Indication: RHEUMATOID ARTHRITIS
     Dosage: LAST DOSE RECEIVED ON 26/OCT/2010
     Route: 042
     Dates: start: 20101123
  14. ACTEMRA [Suspect]
     Active Substance: TOCILIZUMAB
     Route: 042
     Dates: start: 20120131
  15. DICLOFENAC [Concomitant]
     Active Substance: DICLOFENAC
  16. ACTEMRA [Suspect]
     Active Substance: TOCILIZUMAB
     Route: 042
     Dates: start: 20111006
  17. ACTEMRA [Suspect]
     Active Substance: TOCILIZUMAB
     Route: 042
     Dates: start: 20111129
  18. QUETIAPINE. [Concomitant]
     Active Substance: QUETIAPINE

REACTIONS (17)
  - Soft tissue sarcoma [Recovered/Resolved]
  - Weight decreased [Unknown]
  - Weight increased [Unknown]
  - Anxiety [Unknown]
  - Hyperkeratosis [Unknown]
  - Impaired healing [Recovered/Resolved]
  - Oral herpes [Recovering/Resolving]
  - Postoperative wound infection [Unknown]
  - Hyperkeratosis [Recovered/Resolved]
  - Gait disturbance [Unknown]
  - Infusion related reaction [Unknown]
  - Scratch [Unknown]
  - Arthralgia [Not Recovered/Not Resolved]
  - Rheumatoid arthritis [Unknown]
  - Limb injury [Recovered/Resolved]
  - Decreased appetite [Unknown]
  - Arthritis [Unknown]

NARRATIVE: CASE EVENT DATE: 20131227
